FAERS Safety Report 21186677 (Version 1)
Quarter: 2022Q3

REPORT INFORMATION
  Report Type: Spontaneous
  Country: IT (occurrence: IT)
  Receive Date: 20220808
  Receipt Date: 20220808
  Transmission Date: 20221027
  Serious: Yes (Death, Hospitalization, Other)
  Sender: FDA-Public Use
  Company Number: IT-DSJP-DSE-2022-127541

PATIENT
  Age: 58 Year
  Sex: Male

DRUGS (1)
  1. EDOXABAN [Suspect]
     Active Substance: EDOXABAN
     Indication: Atrial fibrillation
     Dosage: 60 MG, QD
     Route: 065

REACTIONS (6)
  - Thalamic infarction [Fatal]
  - Respiratory failure [Fatal]
  - Depressed level of consciousness [Fatal]
  - Thalamus haemorrhage [Fatal]
  - Cerebral haemorrhage [Fatal]
  - Subarachnoid haemorrhage [Fatal]
